FAERS Safety Report 6447816-8 (Version None)
Quarter: 2009Q4

REPORT INFORMATION
  Report Type: 
  Country: None (occurrence: None)
  Receive Date: 20091120
  Receipt Date: 20090928
  Transmission Date: 20100525
  Serious: No
  Sender: FDA-Public Use
  Company Number: A0804080A

PATIENT
  Age: 52 Year
  Sex: Female

DRUGS (2)
  1. VERAMYST [Suspect]
     Dosage: 2SPR PER DAY
     Route: 045
     Dates: start: 20090817
  2. AMBIEN CR [Concomitant]

REACTIONS (9)
  - CONDITION AGGRAVATED [None]
  - EYE DISORDER [None]
  - EYE IRRITATION [None]
  - EYE PRURITUS [None]
  - GLOSSITIS [None]
  - GLOSSODYNIA [None]
  - ILL-DEFINED DISORDER [None]
  - OCULAR HYPERAEMIA [None]
  - SWELLING FACE [None]
